FAERS Safety Report 18953753 (Version 1)
Quarter: 2021Q1

REPORT INFORMATION
  Report Type: Report from Study
  Country: US (occurrence: US)
  Receive Date: 20210301
  Receipt Date: 20210301
  Transmission Date: 20210420
  Serious: No
  Sender: FDA-Public Use
  Company Number: US-KYOWAKIRIN-2019BKK005956

PATIENT

DRUGS (2)
  1. CRYSVITA [Suspect]
     Active Substance: BUROSUMAB-TWZA
     Indication: HEREDITARY HYPOPHOSPHATAEMIC RICKETS
     Dosage: 20MG AND 30MG, (3 INJECTIONS), 80 MG, EVERY FOUR WEEKS
     Route: 058
     Dates: start: 20180906
  2. CRYSVITA [Suspect]
     Active Substance: BUROSUMAB-TWZA
     Indication: HEREDITARY HYPOPHOSPHATAEMIC RICKETS
     Dosage: 20MG AND 30MG (3 INJECTIONS), 80 MG, EVERY FOUR WEEKS
     Route: 058
     Dates: start: 20180906

REACTIONS (1)
  - Vitamin D decreased [Unknown]
